FAERS Safety Report 24921213 (Version 1)
Quarter: 2025Q1

REPORT INFORMATION
  Report Type: Spontaneous
  Country: CA (occurrence: CA)
  Receive Date: 20250204
  Receipt Date: 20250204
  Transmission Date: 20250408
  Serious: Yes (Death, Life-Threatening, Hospitalization, Disabling, Congenital Anomaly, Other)
  Sender: AMGEN
  Company Number: CA-HALEON-2224634

PATIENT
  Age: 40 Year
  Sex: Female
  Weight: 96 kg

DRUGS (111)
  1. AIMOVIG [Suspect]
     Active Substance: ERENUMAB-AOOE
     Indication: Product used for unknown indication
     Route: 065
  2. AIMOVIG [Suspect]
     Active Substance: ERENUMAB-AOOE
     Route: 065
  3. AIMOVIG [Suspect]
     Active Substance: ERENUMAB-AOOE
     Route: 065
  4. AIMOVIG [Suspect]
     Active Substance: ERENUMAB-AOOE
     Route: 065
  5. ENBREL [Suspect]
     Active Substance: ETANERCEPT
     Indication: Rheumatoid arthritis
     Route: 058
  6. ENBREL [Suspect]
     Active Substance: ETANERCEPT
     Route: 058
  7. ENBREL [Suspect]
     Active Substance: ETANERCEPT
     Route: 058
  8. ENBREL [Suspect]
     Active Substance: ETANERCEPT
     Route: 058
  9. ENBREL [Suspect]
     Active Substance: ETANERCEPT
     Route: 058
  10. RITUXIMAB [Suspect]
     Active Substance: RITUXIMAB
     Indication: Rheumatoid arthritis
     Route: 065
  11. RITUXIMAB [Suspect]
     Active Substance: RITUXIMAB
     Route: 065
  12. RITUXIMAB [Suspect]
     Active Substance: RITUXIMAB
     Route: 065
  13. RITUXIMAB [Suspect]
     Active Substance: RITUXIMAB
     Route: 065
  14. RITUXIMAB [Suspect]
     Active Substance: RITUXIMAB
     Route: 065
  15. RITUXIMAB [Suspect]
     Active Substance: RITUXIMAB
     Route: 065
  16. RITUXIMAB [Suspect]
     Active Substance: RITUXIMAB
     Route: 065
  17. RITUXIMAB [Suspect]
     Active Substance: RITUXIMAB
     Route: 065
  18. RITUXIMAB [Suspect]
     Active Substance: RITUXIMAB
     Route: 065
  19. LEFLUNOMIDE [Suspect]
     Active Substance: LEFLUNOMIDE
     Indication: Product used for unknown indication
     Route: 065
  20. LEFLUNOMIDE [Suspect]
     Active Substance: LEFLUNOMIDE
     Route: 065
  21. DICLOFENAC [Suspect]
     Active Substance: DICLOFENAC
     Indication: Product used for unknown indication
     Route: 065
  22. DICLOFENAC SODIUM [Suspect]
     Active Substance: DICLOFENAC SODIUM
     Indication: Product used for unknown indication
     Route: 065
  23. DICLOFENAC SODIUM [Suspect]
     Active Substance: DICLOFENAC SODIUM
     Route: 065
  24. ALENDRONIC ACID [Suspect]
     Active Substance: ALENDRONIC ACID
     Indication: Rheumatoid arthritis
     Route: 065
  25. ALENDRONIC ACID [Suspect]
     Active Substance: ALENDRONIC ACID
     Route: 048
  26. ALENDRONIC ACID [Suspect]
     Active Substance: ALENDRONIC ACID
     Route: 065
  27. COSENTYX [Suspect]
     Active Substance: SECUKINUMAB
     Indication: Psoriatic arthropathy
     Route: 065
  28. OXYCODONE [Suspect]
     Active Substance: OXYCODONE
     Indication: Product used for unknown indication
     Route: 065
  29. CANDESARTAN [Suspect]
     Active Substance: CANDESARTAN
     Indication: Product used for unknown indication
     Route: 048
  30. ACETAMINOPHEN [Suspect]
     Active Substance: ACETAMINOPHEN
     Indication: Product used for unknown indication
     Route: 058
  31. ACETAMINOPHEN [Suspect]
     Active Substance: ACETAMINOPHEN
     Route: 065
  32. CALCIUM CARBONATE [Suspect]
     Active Substance: CALCIUM CARBONATE
     Indication: Product used for unknown indication
     Route: 065
  33. CALCIUM CARBONATE\CHOLECALCIFEROL [Suspect]
     Active Substance: CALCIUM CARBONATE\CHOLECALCIFEROL
     Indication: Product used for unknown indication
     Route: 065
  34. HYDROCORTISONE [Suspect]
     Active Substance: HYDROCORTISONE
     Indication: Product used for unknown indication
     Route: 065
  35. CHLORHEXIDINE GLUCONATE [Suspect]
     Active Substance: CHLORHEXIDINE GLUCONATE
     Indication: Product used for unknown indication
     Route: 065
  36. CHLORHEXIDINE GLUCONATE [Suspect]
     Active Substance: CHLORHEXIDINE GLUCONATE
     Route: 065
  37. VITAMIN C [Suspect]
     Active Substance: ASCORBIC ACID
     Indication: Product used for unknown indication
     Route: 065
  38. ACETAMINOPHEN AND CODEINE [Suspect]
     Active Substance: ACETAMINOPHEN\CODEINE PHOSPHATE
     Indication: Product used for unknown indication
     Route: 065
  39. ACTEMRA [Suspect]
     Active Substance: TOCILIZUMAB
     Indication: Rheumatoid arthritis
     Route: 065
  40. ACTEMRA [Suspect]
     Active Substance: TOCILIZUMAB
     Route: 065
  41. ACTEMRA [Suspect]
     Active Substance: TOCILIZUMAB
     Route: 065
  42. ACTEMRA [Suspect]
     Active Substance: TOCILIZUMAB
     Route: 065
  43. ACTEMRA [Suspect]
     Active Substance: TOCILIZUMAB
     Route: 065
  44. ACTEMRA [Suspect]
     Active Substance: TOCILIZUMAB
     Route: 065
  45. ACTEMRA [Suspect]
     Active Substance: TOCILIZUMAB
     Route: 065
  46. ACTEMRA [Suspect]
     Active Substance: TOCILIZUMAB
     Route: 065
  47. ACTEMRA [Suspect]
     Active Substance: TOCILIZUMAB
     Route: 065
  48. ACTEMRA [Suspect]
     Active Substance: TOCILIZUMAB
     Route: 065
  49. ACTEMRA [Suspect]
     Active Substance: TOCILIZUMAB
     Route: 065
  50. ACTEMRA [Suspect]
     Active Substance: TOCILIZUMAB
     Route: 065
  51. ACTEMRA [Suspect]
     Active Substance: TOCILIZUMAB
     Route: 065
  52. ACTEMRA [Suspect]
     Active Substance: TOCILIZUMAB
     Route: 065
  53. LEFLUNOMIDE [Suspect]
     Active Substance: LEFLUNOMIDE
     Indication: Rheumatoid arthritis
     Route: 065
  54. LEFLUNOMIDE [Suspect]
     Active Substance: LEFLUNOMIDE
     Route: 065
  55. LEFLUNOMIDE [Suspect]
     Active Substance: LEFLUNOMIDE
     Route: 065
  56. LEFLUNOMIDE [Suspect]
     Active Substance: LEFLUNOMIDE
     Route: 065
  57. LEFLUNOMIDE [Suspect]
     Active Substance: LEFLUNOMIDE
     Route: 065
  58. LEFLUNOMIDE [Suspect]
     Active Substance: LEFLUNOMIDE
     Route: 065
  59. LEFLUNOMIDE [Suspect]
     Active Substance: LEFLUNOMIDE
     Route: 065
  60. ARAVA [Suspect]
     Active Substance: LEFLUNOMIDE
     Indication: Rheumatoid arthritis
     Route: 065
  61. ARAVA [Suspect]
     Active Substance: LEFLUNOMIDE
     Route: 048
  62. AZATHIOPRINE SODIUM [Suspect]
     Active Substance: AZATHIOPRINE SODIUM
     Indication: Rheumatoid arthritis
     Route: 065
  63. AZATHIOPRINE SODIUM [Suspect]
     Active Substance: AZATHIOPRINE SODIUM
     Route: 065
  64. BERINERT [Suspect]
     Active Substance: HUMAN C1-ESTERASE INHIBITOR
     Indication: Product used for unknown indication
     Route: 065
  65. BOTULINUM TOXIN TYPE A [Suspect]
     Active Substance: BOTULINUM TOXIN TYPE A
     Indication: Product used for unknown indication
     Route: 065
  66. BUTRANS [Suspect]
     Active Substance: BUPRENORPHINE
     Indication: Product used for unknown indication
     Route: 065
  67. BUTRANS [Suspect]
     Active Substance: BUPRENORPHINE
     Route: 065
  68. CALCIUM ASCORBATE [Suspect]
     Active Substance: CALCIUM ASCORBATE
     Indication: Product used for unknown indication
     Route: 065
  69. CALCIUM ASCORBATE [Suspect]
     Active Substance: CALCIUM ASCORBATE
     Route: 065
  70. CALCIUM GLUBIONATE [Suspect]
     Active Substance: CALCIUM GLUBIONATE
     Indication: Product used for unknown indication
     Route: 065
  71. CELEBREX [Suspect]
     Active Substance: CELECOXIB
     Indication: Product used for unknown indication
     Route: 065
  72. CELEBREX [Suspect]
     Active Substance: CELECOXIB
     Route: 065
  73. CELEBREX [Suspect]
     Active Substance: CELECOXIB
     Route: 065
  74. CELEBREX [Suspect]
     Active Substance: CELECOXIB
     Route: 065
  75. CETIRIZINE HYDROCHLORIDE [Suspect]
     Active Substance: CETIRIZINE HYDROCHLORIDE
     Indication: Rheumatoid arthritis
     Route: 065
  76. CETIRIZINE HYDROCHLORIDE [Suspect]
     Active Substance: CETIRIZINE HYDROCHLORIDE
     Route: 065
  77. CIMZIA [Suspect]
     Active Substance: CERTOLIZUMAB PEGOL
     Indication: Rheumatoid arthritis
     Route: 065
  78. CIMZIA [Suspect]
     Active Substance: CERTOLIZUMAB PEGOL
     Route: 065
  79. CIMZIA [Suspect]
     Active Substance: CERTOLIZUMAB PEGOL
     Route: 065
  80. CIMZIA [Suspect]
     Active Substance: CERTOLIZUMAB PEGOL
     Route: 065
  81. CORTISONE ACETATE [Suspect]
     Active Substance: CORTISONE ACETATE
     Indication: Rheumatoid arthritis
     Route: 065
  82. CORTISONE ACETATE [Suspect]
     Active Substance: CORTISONE ACETATE
     Route: 065
  83. CORTISONE ACETATE [Suspect]
     Active Substance: CORTISONE ACETATE
     Route: 065
  84. CORTISONE ACETATE [Suspect]
     Active Substance: CORTISONE ACETATE
     Route: 065
  85. DESOXIMETASONE [Suspect]
     Active Substance: DESOXIMETASONE
     Indication: Rheumatoid arthritis
     Route: 065
  86. DESOXIMETASONE [Suspect]
     Active Substance: DESOXIMETASONE
     Route: 065
  87. DESOXIMETASONE [Suspect]
     Active Substance: DESOXIMETASONE
     Route: 065
  88. DESOXIMETASONE [Suspect]
     Active Substance: DESOXIMETASONE
     Route: 065
  89. DESOXIMETASONE [Suspect]
     Active Substance: DESOXIMETASONE
     Route: 065
  90. DOMPERIDONE MALEATE [Suspect]
     Active Substance: DOMPERIDONE MALEATE
     Indication: Product used for unknown indication
     Route: 065
  91. DOMPERIDONE MALEATE [Suspect]
     Active Substance: DOMPERIDONE MALEATE
     Route: 065
  92. ERGOCALCIFEROL [Suspect]
     Active Substance: ERGOCALCIFEROL
     Indication: Product used for unknown indication
     Route: 065
  93. ERGOCALCIFEROL [Suspect]
     Active Substance: ERGOCALCIFEROL
     Route: 065
  94. FLUMETHASONE [Suspect]
     Active Substance: FLUMETHASONE
     Indication: Product used for unknown indication
     Route: 065
  95. FLUMETHASONE PIVALATE [Suspect]
     Active Substance: FLUMETHASONE PIVALATE
     Indication: Product used for unknown indication
     Route: 065
  96. FOLIC ACID [Suspect]
     Active Substance: FOLIC ACID
     Indication: Rheumatoid arthritis
     Route: 065
  97. FOLIC ACID [Suspect]
     Active Substance: FOLIC ACID
     Route: 065
  98. FOLIC ACID [Suspect]
     Active Substance: FOLIC ACID
     Route: 065
  99. FOLIC ACID [Suspect]
     Active Substance: FOLIC ACID
     Route: 065
  100. FOLIC ACID [Suspect]
     Active Substance: FOLIC ACID
     Route: 065
  101. FOLIC ACID [Suspect]
     Active Substance: FOLIC ACID
     Route: 065
  102. FOLIC ACID [Suspect]
     Active Substance: FOLIC ACID
     Route: 065
  103. FOLIC ACID [Suspect]
     Active Substance: FOLIC ACID
     Route: 065
  104. FOLIC ACID [Suspect]
     Active Substance: FOLIC ACID
     Route: 065
  105. FOLIC ACID [Suspect]
     Active Substance: FOLIC ACID
     Route: 065
  106. FOLIC ACID [Suspect]
     Active Substance: FOLIC ACID
     Route: 065
  107. FOLIC ACID [Suspect]
     Active Substance: FOLIC ACID
     Route: 065
  108. FOLIC ACID [Suspect]
     Active Substance: FOLIC ACID
     Route: 065
  109. FOSAMAX [Suspect]
     Active Substance: ALENDRONATE SODIUM
     Indication: Rheumatoid arthritis
     Route: 065
  110. GOLD [Suspect]
     Active Substance: GOLD
     Indication: Product used for unknown indication
     Route: 065
  111. DESOGESTREL\ETHINYL ESTRADIOL [Concomitant]
     Active Substance: DESOGESTREL\ETHINYL ESTRADIOL
     Indication: Product used for unknown indication
     Route: 065

REACTIONS (35)
  - Drug-induced liver injury [Fatal]
  - Epilepsy [Fatal]
  - Liver injury [Fatal]
  - Systemic lupus erythematosus [Fatal]
  - Hepatitis [Fatal]
  - Pemphigus [Fatal]
  - Pericarditis [Fatal]
  - Psoriatic arthropathy [Fatal]
  - Rheumatoid arthritis [Fatal]
  - Lower respiratory tract infection [Fatal]
  - Coeliac disease [Fatal]
  - Breast cancer stage III [Fatal]
  - Rheumatic fever [Fatal]
  - Duodenal ulcer perforation [Fatal]
  - Pneumonia [Fatal]
  - Intentional product use issue [Fatal]
  - Drug intolerance [Fatal]
  - Helicobacter infection [Fatal]
  - Contraindicated product administered [Fatal]
  - Off label use [Fatal]
  - Dizziness [Fatal]
  - Live birth [Fatal]
  - Paraesthesia [Fatal]
  - Arthropathy [Fatal]
  - Muscular weakness [Fatal]
  - Fatigue [Fatal]
  - Hypoaesthesia [Fatal]
  - Nasopharyngitis [Fatal]
  - Migraine [Fatal]
  - Joint range of motion decreased [Fatal]
  - Lip dry [Fatal]
  - Injection site reaction [Fatal]
  - Blister [Fatal]
  - Stomatitis [Fatal]
  - Drug ineffective [Fatal]
